FAERS Safety Report 24710456 (Version 1)
Quarter: 2024Q4

REPORT INFORMATION
  Report Type: Spontaneous
  Country: US (occurrence: US)
  Receive Date: 20241209
  Receipt Date: 20241209
  Transmission Date: 20250115
  Serious: Yes (Other)
  Sender: Unknown Manufacturer
  Company Number: US-KOANAAP-SML-US-2024-01187

PATIENT
  Age: 65 Year
  Sex: Male

DRUGS (10)
  1. GEMCITABINE [Suspect]
     Active Substance: GEMCITABINE
     Indication: Acinar cell carcinoma of pancreas
  2. GEMCITABINE [Suspect]
     Active Substance: GEMCITABINE
  3. CAPECITABINE [Suspect]
     Active Substance: CAPECITABINE
     Indication: Acinar cell carcinoma of pancreas
  4. IRINOTECAN [Suspect]
     Active Substance: IRINOTECAN
     Indication: Acinar cell carcinoma of pancreas
  5. LEUCOVORIN [Suspect]
     Active Substance: LEUCOVORIN\LEUCOVORIN CALCIUM
     Indication: Acinar cell carcinoma of pancreas
  6. FLUOROURACIL [Suspect]
     Active Substance: FLUOROURACIL
     Indication: Acinar cell carcinoma of pancreas
  7. OXALIPLATIN [Suspect]
     Active Substance: OXALIPLATIN
     Indication: Acinar cell carcinoma of pancreas
  8. LAROTRECTINIB [Suspect]
     Active Substance: LAROTRECTINIB
     Indication: Acinar cell carcinoma of pancreas
  9. CAMONSERTIB [Suspect]
     Active Substance: CAMONSERTIB
     Indication: Acinar cell carcinoma of pancreas
  10. PACLITAXEL [Suspect]
     Active Substance: PACLITAXEL
     Indication: Acinar cell carcinoma of pancreas

REACTIONS (2)
  - Disease progression [Unknown]
  - Drug ineffective [Unknown]
